FAERS Safety Report 19283643 (Version 1)
Quarter: 2021Q2

REPORT INFORMATION
  Report Type: Spontaneous
  Country: US (occurrence: US)
  Receive Date: 20210521
  Receipt Date: 20210521
  Transmission Date: 20210717
  Serious: Yes (Hospitalization)
  Sender: FDA-Public Use
  Company Number: None

PATIENT
  Sex: Female
  Weight: 88.9 kg

DRUGS (2)
  1. BEVACIZUMAB (RHUMAB VEGF) [Suspect]
     Active Substance: BEVACIZUMAB
     Dates: start: 20201216, end: 20210505
  2. DOXIL [Suspect]
     Active Substance: DOXORUBICIN HYDROCHLORIDE
     Dates: start: 20201216, end: 20210421

REACTIONS (5)
  - Fatigue [None]
  - Malignant pleural effusion [None]
  - Carotid arteriosclerosis [None]
  - Carotid artery stenosis [None]
  - Performance status decreased [None]

NARRATIVE: CASE EVENT DATE: 20210410
